FAERS Safety Report 4520173-X (Version None)
Quarter: 2004Q4

REPORT INFORMATION
  Report Type: 
  Country: None (occurrence: None)
  Receive Date: 20041027
  Receipt Date: 20040825
  Transmission Date: 20050328
  Serious: No
  Sender: FDA-Public Use
  Company Number: US088536

PATIENT
  Age: 62 Year
  Sex: Male
  Weight: 75.3 kg

DRUGS (16)
  1. SENSIPAR [Suspect]
     Indication: HYPERPARATHYROIDISM SECONDARY
     Dosage: 30 MG, 1 IN 1 DAYS, PO
     Route: 048
     Dates: start: 20040804, end: 20040820
  2. ACETYLSALICYLIC ACID [Concomitant]
  3. COLCHICINE [Concomitant]
  4. SODIUM FERRIC GLUCONATE COMPLEX [Concomitant]
  5. FUROSEMIDE [Concomitant]
  6. DOXERCALCEROL [Concomitant]
  7. INDOMETHACIN [Concomitant]
  8. ATORVASTATIN CALCIUM [Concomitant]
  9. BENAZEPRIL HCL [Concomitant]
  10. METOCLOPRAMIDE [Concomitant]
  11. MULTI-VITAMINS [Concomitant]
  12. PANTOPRAZOLE [Concomitant]
  13. SEVELAMER HCL [Concomitant]
  14. METOPROLOL [Concomitant]
  15. NOVOLIN 70/30 [Concomitant]
  16. EPOGEN [Concomitant]

REACTIONS (6)
  - ABDOMINAL PAIN UPPER [None]
  - ANOREXIA [None]
  - ARTHRALGIA [None]
  - HEADACHE [None]
  - SENSATION OF HEAVINESS [None]
  - VOMITING [None]
